FAERS Safety Report 16155505 (Version 1)
Quarter: 2019Q2

REPORT INFORMATION
  Report Type: Spontaneous
  Country: US (occurrence: US)
  Receive Date: 20190404
  Receipt Date: 20190404
  Transmission Date: 20190711
  Serious: No
  Sender: FDA-Public Use
  Company Number: US-AMGEN-USASP2019051378

PATIENT

DRUGS (1)
  1. AIMOVIG [Suspect]
     Active Substance: ERENUMAB-AOOE
     Indication: PRODUCT USED FOR UNKNOWN INDICATION
     Dosage: UNK
     Route: 065

REACTIONS (20)
  - Influenza like illness [Unknown]
  - Palpitations [Unknown]
  - Arthralgia [Unknown]
  - Nervous system disorder [Unknown]
  - Chest discomfort [Unknown]
  - Insomnia [Unknown]
  - Gastrointestinal disorder [Unknown]
  - Dizziness [Unknown]
  - Muscle disorder [Unknown]
  - Muscle spasms [Unknown]
  - Vertigo [Unknown]
  - Abdominal discomfort [Unknown]
  - Chills [Unknown]
  - Constipation [Unknown]
  - Nausea [Unknown]
  - Amnesia [Unknown]
  - Diarrhoea [Unknown]
  - Abdominal distension [Unknown]
  - Alopecia [Unknown]
  - Fatigue [Unknown]
